FAERS Safety Report 8786333 (Version 1)
Quarter: 2012Q4

REPORT INFORMATION
  Report Type: 
  Country: US (occurrence: US)
  Receive Date: 20120914
  Receipt Date: 20120914
  Transmission Date: 20130627
  Serious: Yes (Other)
  Sender: FDA-Public Use
  Company Number: US-ROCHE-1111359

PATIENT
  Sex: Female

DRUGS (5)
  1. TARCEVA [Suspect]
     Indication: LUNG NEOPLASM MALIGNANT
     Route: 065
     Dates: start: 20081029
  2. AVASTIN [Suspect]
     Indication: PRODUCT USED FOR UNKNOWN INDICATION
     Route: 065
     Dates: end: 20080516
  3. CARBOPLATIN [Concomitant]
  4. TAXOTERE [Concomitant]
  5. PRALATREXATE [Concomitant]

REACTIONS (3)
  - Mental status changes [Unknown]
  - Metastases to central nervous system [Unknown]
  - Vasogenic cerebral oedema [Unknown]
